FAERS Safety Report 7938864-7 (Version None)
Quarter: 2011Q4

REPORT INFORMATION
  Report Type: 
  Country: None (occurrence: None)
  Receive Date: 20111124
  Receipt Date: 20111121
  Transmission Date: 20120403
  Serious: Yes (Death, Other)
  Sender: FDA-Public Use
  Company Number: IT-BRISTOL-MYERS SQUIBB COMPANY-16205742

PATIENT
  Age: 89 Year
  Sex: Female

DRUGS (10)
  1. NEXIUM [Concomitant]
  2. CARVEDILOL [Concomitant]
     Dosage: 1DF: 1.5 UNIT
  3. ENALAPRIL MALEATE [Concomitant]
  4. ZOLOFT [Concomitant]
  5. LASIX [Concomitant]
     Dosage: 1DF: 1UNIT
  6. ZOLPIDEM TARTRATE [Concomitant]
  7. SEROQUEL [Concomitant]
  8. COUMADIN [Suspect]
     Indication: ATRIAL FIBRILLATION
     Dosage: 1DF: 1UNIT
     Route: 048
  9. LANOXIN [Concomitant]
     Dosage: 1DF: 1UNIT
  10. OXYCODONE AND ACETAMINOPHEN [Concomitant]

REACTIONS (2)
  - SUBDURAL HAEMATOMA [None]
  - HEAD INJURY [None]
